FAERS Safety Report 22133797 (Version 1)
Quarter: 2023Q1

REPORT INFORMATION
  Report Type: Report from Study
  Country: US (occurrence: US)
  Receive Date: 20230324
  Receipt Date: 20230324
  Transmission Date: 20230418
  Serious: Yes (Hospitalization)
  Sender: FDA-Public Use
  Company Number: US-JNJFOC-20230350572

PATIENT
  Age: 15 Year
  Sex: Female
  Weight: 66.1 kg

DRUGS (13)
  1. INFLIXIMAB [Suspect]
     Active Substance: INFLIXIMAB
     Indication: Crohn^s disease
     Route: 041
     Dates: start: 20120716
  2. ERGOCALCIFEROL [Concomitant]
     Active Substance: ERGOCALCIFEROL
  3. ACETAMINOPHEN [Concomitant]
     Active Substance: ACETAMINOPHEN
  4. CYANOCOBALAMIN [Concomitant]
     Active Substance: CYANOCOBALAMIN
  5. BENTYL [Concomitant]
     Active Substance: DICYCLOMINE HYDROCHLORIDE
  6. FLUOXETINE [Concomitant]
     Active Substance: FLUOXETINE HYDROCHLORIDE
  7. ESOMEPRAZOLE [Concomitant]
     Active Substance: ESOMEPRAZOLE
  8. FAMOTIDINE [Concomitant]
     Active Substance: FAMOTIDINE
  9. ONDANSETRON [Concomitant]
     Active Substance: ONDANSETRON
  10. SERTRALINE [Concomitant]
     Active Substance: SERTRALINE HYDROCHLORIDE
  11. MELATONIN [Concomitant]
     Active Substance: MELATONIN
  12. IRON;VITAMIN C [Concomitant]
  13. NORELGESTROMIN [Concomitant]
     Active Substance: NORELGESTROMIN

REACTIONS (1)
  - Gastrointestinal hypermotility [Recovered/Resolved]

NARRATIVE: CASE EVENT DATE: 20230201
